FAERS Safety Report 25338763 (Version 3)
Quarter: 2025Q3

REPORT INFORMATION
  Report Type: Report from Study
  Country: US (occurrence: US)
  Receive Date: 20250520
  Receipt Date: 20250912
  Transmission Date: 20251021
  Serious: Yes (Other)
  Sender: MALLINCKRODT
  Company Number: US-MALLINCKRODT-MNK202501671

PATIENT
  Age: 64 Year
  Sex: Female

DRUGS (3)
  1. CORTICOTROPIN [Suspect]
     Active Substance: CORTICOTROPIN
     Indication: Punctate keratitis
     Route: 058
     Dates: start: 20250315
  2. CORTICOTROPIN [Suspect]
     Active Substance: CORTICOTROPIN
     Route: 058
     Dates: start: 20250330
  3. ATORVASTATIN [Concomitant]
     Active Substance: ATORVASTATIN

REACTIONS (16)
  - Back pain [Unknown]
  - Autoimmune disorder [Unknown]
  - Taste disorder [Unknown]
  - Tongue disorder [Unknown]
  - Dizziness [Unknown]
  - Hypopnoea [Unknown]
  - Dyspnoea [Recovering/Resolving]
  - Blood pressure increased [Recovered/Resolved]
  - Abdominal distension [Unknown]
  - Weight increased [Recovered/Resolved]
  - Injection site pain [Unknown]
  - Injection site bruising [Unknown]
  - Injection site extravasation [Unknown]
  - Fluid retention [Not Recovered/Not Resolved]
  - Rash erythematous [Recovered/Resolved]
  - Oedema [Recovered/Resolved]

NARRATIVE: CASE EVENT DATE: 20250101
